FAERS Safety Report 5274589-7 (Version None)
Quarter: 2007Q1

REPORT INFORMATION
  Report Type: 
  Country: None (occurrence: None)
  Receive Date: 20070323
  Receipt Date: 20070313
  Transmission Date: 20070707
  Serious: Yes (Other)
  Sender: FDA-Public Use
  Company Number: US-PFIZER INC-2007020698

PATIENT

DRUGS (1)
  1. SUTENT [Suspect]

REACTIONS (2)
  - HYPOAESTHESIA FACIAL [None]
  - VISUAL DISTURBANCE [None]
